FAERS Safety Report 11851105 (Version 1)
Quarter: 2015Q4

REPORT INFORMATION
  Report Type: Spontaneous
  Country: US (occurrence: US)
  Receive Date: 20151218
  Receipt Date: 20151218
  Transmission Date: 20160305
  Serious: No
  Sender: FDA-Public Use
  Company Number: US-JNJFOC-20150516752

PATIENT
  Age: 59 Year
  Sex: Female
  Weight: 58.97 kg

DRUGS (7)
  1. RED YEAST RICE EXTRACT [Concomitant]
     Indication: BLOOD TRIGLYCERIDES
     Dosage: ONGOING SINCE FOR ABOUT 2 YEARS
     Route: 065
  2. WOMENS ROGAINE UNSCENTED [Suspect]
     Active Substance: MINOXIDIL
     Indication: ALOPECIA
     Dosage: 1 CAPFUL
     Route: 061
  3. VITAMINA K3 [Concomitant]
     Indication: NUTRITIONAL SUPPLEMENTATION
     Dosage: ONGOING SINCE 1 YEAR
     Route: 065
  4. KRILL OIL [Concomitant]
     Active Substance: DIETARY SUPPLEMENT
     Indication: CARDIAC DISORDER
     Dosage: ONGOING SINCE 1 YEAR
     Route: 065
  5. WOMENS ROGAINE UNSCENTED [Suspect]
     Active Substance: MINOXIDIL
     Route: 061
  6. PRAVASTATIN [Concomitant]
     Active Substance: PRAVASTATIN\PRAVASTATIN SODIUM
     Indication: BLOOD CHOLESTEROL
     Dosage: ONGOING SINCE ABOUT TWO YEARS
     Route: 065
  7. MVI (MULTIVITAMINS) [Concomitant]
     Indication: ROUTINE HEALTH MAINTENANCE
     Dosage: ONGOING SINCE 1 YEAR
     Route: 065

REACTIONS (2)
  - Hair colour changes [Recovered/Resolved]
  - Product formulation issue [Recovered/Resolved]
